FAERS Safety Report 18012933 (Version 1)
Quarter: 2020Q3

REPORT INFORMATION
  Report Type: Report from Study
  Country: CA (occurrence: CA)
  Receive Date: 20200713
  Receipt Date: 20200713
  Transmission Date: 20201103
  Serious: Yes (Hospitalization, Disabling, Other)
  Sender: FDA-Public Use
  Company Number: CA-ACCORD-189518

PATIENT
  Age: 56 Year
  Sex: Female

DRUGS (16)
  1. FOLIC ACID. [Concomitant]
     Active Substance: FOLIC ACID
     Dosage: 1 EVERY 1 DAYS
  2. MIDAZOLAM. [Concomitant]
     Active Substance: MIDAZOLAM
     Indication: COLONOSCOPY
     Route: 042
  3. MORPHINE [Concomitant]
     Active Substance: MORPHINE
  4. CALCIUM CARBONATE. [Concomitant]
     Active Substance: CALCIUM CARBONATE
     Dosage: 1 EVERY 1 DAYS
     Route: 048
  5. METHOTREXATE. [Suspect]
     Active Substance: METHOTREXATE
     Indication: COLITIS ULCERATIVE
     Dosage: 1 EVERY 1 WEEKS
     Route: 065
  6. VITAMIN D [Concomitant]
     Active Substance: VITAMIN D NOS
     Dosage: 1 EVERY 1 DAYS
     Route: 048
  7. FENTANYL. [Concomitant]
     Active Substance: FENTANYL
     Indication: COLONOSCOPY
     Route: 042
  8. PARACETAMOL [Concomitant]
     Active Substance: ACETAMINOPHEN
     Indication: PAIN
     Route: 065
  9. DIMENHYDRINATE. [Concomitant]
     Active Substance: DIMENHYDRINATE
  10. TRAMADOL. [Concomitant]
     Active Substance: TRAMADOL
  11. ESTRADOT [Concomitant]
     Active Substance: ESTRADIOL
     Indication: OESTROGEN REPLACEMENT THERAPY
     Route: 062
  12. ONDANSETRON [Concomitant]
     Active Substance: ONDANSETRON
     Indication: COLONOSCOPY
     Route: 042
  13. PANTOPRAZOLE [Concomitant]
     Active Substance: PANTOPRAZOLE
     Dosage: 1  EVERY 1 DAYS
     Route: 048
  14. VEDOLIZUMAB [Suspect]
     Active Substance: VEDOLIZUMAB
     Indication: COLITIS ULCERATIVE
     Route: 042
  15. PREDNISONE. [Concomitant]
     Active Substance: PREDNISONE
  16. TOFACITINIB [Concomitant]
     Active Substance: TOFACITINIB
     Indication: COLITIS ULCERATIVE
     Dosage: 2 EVERY 1 DAYS
     Route: 048

REACTIONS (6)
  - Nausea [Not Recovered/Not Resolved]
  - Arthralgia [Not Recovered/Not Resolved]
  - Colitis ulcerative [Not Recovered/Not Resolved]
  - Dizziness [Not Recovered/Not Resolved]
  - Optic neuritis [Not Recovered/Not Resolved]
  - Phlebitis infective [Not Recovered/Not Resolved]
